FAERS Safety Report 24376007 (Version 2)
Quarter: 2024Q4

REPORT INFORMATION
  Report Type: Spontaneous
  Country: US (occurrence: US)
  Receive Date: 20240928
  Receipt Date: 20241015
  Transmission Date: 20250115
  Serious: No
  Sender: MERCK
  Company Number: US-009507513-2408USA010720

PATIENT
  Sex: Female
  Weight: 56.7 kg

DRUGS (8)
  1. WINREVAIR [Suspect]
     Active Substance: SOTATERCEPT-CSRK
     Indication: Product used for unknown indication
     Dosage: UNK
     Route: 065
  2. WINREVAIR [Suspect]
     Active Substance: SOTATERCEPT-CSRK
     Dosage: 0.3 MILLIGRAM/KILOGRAM
     Route: 065
  3. TYVASO DPI [Suspect]
     Active Substance: TREPROSTINIL
     Indication: Pulmonary arterial hypertension
     Dosage: 64 MICROGRAM, QID
     Dates: start: 20230830
  4. ZYRTEC [Concomitant]
     Active Substance: CETIRIZINE HYDROCHLORIDE
  5. ADDERALL [Concomitant]
     Active Substance: AMPHETAMINE ASPARTATE\AMPHETAMINE SULFATE\DEXTROAMPHETAMINE SACCHARATE\DEXTROAMPHETAMINE SULFATE
  6. PEPCID [Concomitant]
     Active Substance: FAMOTIDINE
  7. TADALAFIL [Concomitant]
     Active Substance: TADALAFIL
  8. YASMIN [Concomitant]
     Active Substance: DROSPIRENONE\ETHINYL ESTRADIOL

REACTIONS (1)
  - Haemoglobin increased [Unknown]
